FAERS Safety Report 16747261 (Version 1)
Quarter: 2019Q3

REPORT INFORMATION
  Report Type: Spontaneous
  Country: US (occurrence: US)
  Receive Date: 20190827
  Receipt Date: 20190827
  Transmission Date: 20191005
  Serious: Yes (Hospitalization, Other)
  Sender: FDA-Public Use
  Company Number: US-VIIV HEALTHCARE LIMITED-US2019GSK155908

PATIENT
  Age: 47 Year
  Sex: Female

DRUGS (4)
  1. DOLUTEGRAVIR [Suspect]
     Active Substance: DOLUTEGRAVIR
     Indication: HIV INFECTION
     Dosage: UNK
  2. METHYLPREDNISOLONE. [Concomitant]
     Active Substance: METHYLPREDNISOLONE
     Indication: MULTIPLE SCLEROSIS
  3. EMTRICITABINE + TENOFOVIR [Suspect]
     Active Substance: EMTRICITABINE\TENOFOVIR
     Indication: HIV INFECTION
     Dosage: UNK
  4. METHYLPREDNISOLONE. [Concomitant]
     Active Substance: METHYLPREDNISOLONE
     Indication: OPTIC NEURITIS
     Dosage: UNK
     Route: 042

REACTIONS (9)
  - Immune reconstitution inflammatory syndrome [Unknown]
  - Multiple sclerosis relapse [Unknown]
  - Eye pain [Unknown]
  - Blindness [Unknown]
  - Hemiplegia [Unknown]
  - White matter lesion [Unknown]
  - Spinal cord injury cervical [Unknown]
  - Treatment noncompliance [Unknown]
  - Papilloedema [Unknown]
